FAERS Safety Report 22232500 (Version 1)
Quarter: 2023Q2

REPORT INFORMATION
  Report Type: Spontaneous
  Country: US (occurrence: None)
  Receive Date: 20230420
  Receipt Date: 20230420
  Transmission Date: 20230721
  Serious: No
  Sender: FDA-Public Use
  Company Number: US-ROCHE-3036288

PATIENT
  Sex: Female

DRUGS (1)
  1. ESBRIET [Suspect]
     Active Substance: PIRFENIDONE
     Indication: Idiopathic pulmonary fibrosis
     Dosage: THERAPY ONGOING: YES, TAKE 1 TABLET BY MOUTH 3 TIMES A DAY FOR 1 WEEK THEN 2 TABLETS BY MOUTH 3 TIME
     Route: 048
     Dates: start: 20211018

REACTIONS (3)
  - Incorrect dose administered [Unknown]
  - Intentional product misuse [Unknown]
  - No adverse event [Unknown]
